FAERS Safety Report 4749553-4 (Version None)
Quarter: 2005Q3

REPORT INFORMATION
  Report Type: 
  Country: None (occurrence: None)
  Receive Date: 20050819
  Receipt Date: 20050819
  Transmission Date: 20060218
  Serious: Yes (Other)
  Sender: FDA-Public Use
  Company Number: None

PATIENT
  Age: 22 Year
  Sex: Male
  Weight: 52.1637 kg

DRUGS (5)
  1. FENTANYL [Suspect]
     Indication: PAIN
     Dosage: 50 MCG - APPLY 1 PATCH EVERY 72 HRS
     Dates: start: 20050521, end: 20050530
  2. FENTANYL [Suspect]
     Indication: PAIN
     Dosage: 50 MCG - APPLY 1 PATCH EVERY 72 HRS
     Dates: start: 20050521
  3. FENTANYL [Suspect]
     Indication: PAIN
     Dosage: 50 MCG - APPLY 1 PATCH EVERY 72 HRS
     Dates: start: 20050524
  4. FENTANYL [Suspect]
     Indication: PAIN
     Dosage: 50 MCG - APPLY 1 PATCH EVERY 72 HRS
     Dates: start: 20050527
  5. FENTANYL [Suspect]
     Indication: PAIN
     Dosage: 50 MCG - APPLY 1 PATCH EVERY 72 HRS
     Dates: start: 20050530

REACTIONS (9)
  - ANXIETY [None]
  - ASTHENIA [None]
  - EATING DISORDER [None]
  - HEADACHE [None]
  - INSOMNIA [None]
  - NAUSEA [None]
  - NIGHTMARE [None]
  - PHARMACEUTICAL PRODUCT COMPLAINT [None]
  - VOMITING [None]
